FAERS Safety Report 5448187-6 (Version None)
Quarter: 2007Q3

REPORT INFORMATION
  Report Type: 
  Country: None (occurrence: None)
  Receive Date: 20070906
  Receipt Date: 20070822
  Transmission Date: 20080115
  Serious: Yes (Hospitalization, Other)
  Sender: FDA-Public Use
  Company Number: 2007EU001866

PATIENT
  Age: 62 Year
  Sex: Female

DRUGS (6)
  1. TACROLIMUS [Suspect]
     Indication: RENAL TRANSPLANT
  2. MYCOPHENOLATE MOFETIL [Suspect]
     Indication: RENAL TRANSPLANT
     Dosage: /D
  3. CORTICOSTEROIDS() [Suspect]
     Indication: RENAL TRANSPLANT
     Dosage: /D
  4. ANTITHYMOCYTE IMMUNOGLOBULIN(ANTITHYMOCYTE IMMUNOGLOBULIN) [Suspect]
     Indication: RENAL TRANSPLANT
     Dosage: /D
  5. ORTHOCLONE OKT3 [Suspect]
     Indication: RENAL TRANSPLANT
     Dosage: /D
  6. AZATHIOPRINE [Suspect]
     Indication: RENAL TRANSPLANT
     Dosage: /D

REACTIONS (18)
  - ACUTE VESTIBULAR SYNDROME [None]
  - BLOOD PRESSURE INCREASED [None]
  - CHRONIC ALLOGRAFT NEPHROPATHY [None]
  - DIABETES MELLITUS [None]
  - ENTEROCOLITIS HAEMORRHAGIC [None]
  - ESCHERICHIA INFECTION [None]
  - HAEMODIALYSIS [None]
  - HEADACHE [None]
  - HERPES ZOSTER [None]
  - HYDROCEPHALUS [None]
  - KIDNEY TRANSPLANT REJECTION [None]
  - MENINGITIS CRYPTOCOCCAL [None]
  - NAUSEA [None]
  - NEPHROPATHY TOXIC [None]
  - NYSTAGMUS [None]
  - OESOPHAGEAL CANDIDIASIS [None]
  - OPPORTUNISTIC INFECTION [None]
  - VERTIGO [None]
